FAERS Safety Report 20628141 (Version 5)
Quarter: 2022Q4

REPORT INFORMATION
  Report Type: Report from Study
  Country: US (occurrence: None)
  Receive Date: 20220323
  Receipt Date: 20221209
  Transmission Date: 20230113
  Serious: Yes (Hospitalization)
  Sender: FDA-Public Use
  Company Number: US-ROCHE-3051090

PATIENT
  Age: 70 Year
  Sex: Female
  Weight: 82.1 kg

DRUGS (3)
  1. ATEZOLIZUMAB [Suspect]
     Active Substance: ATEZOLIZUMAB
     Indication: Cholangiocarcinoma
     Route: 065
     Dates: start: 20211222, end: 20220105
  2. COBIMETINIB [Suspect]
     Active Substance: COBIMETINIB
     Indication: Cholangiocarcinoma
     Route: 048
     Dates: start: 20211222, end: 20220111
  3. VARLILUMAB [Suspect]
     Active Substance: VARLILUMAB
     Indication: Cholangiocarcinoma
     Route: 065
     Dates: start: 20211222, end: 20211222

REACTIONS (3)
  - Blood creatine phosphokinase increased [Recovered/Resolved]
  - Myasthenia gravis [Recovering/Resolving]
  - Myositis [Recovering/Resolving]

NARRATIVE: CASE EVENT DATE: 20220118
